FAERS Safety Report 8478241-6 (Version None)
Quarter: 2012Q2

REPORT INFORMATION
  Report Type: 
  Country: None (occurrence: None)
  Receive Date: 20120629
  Receipt Date: 20120626
  Transmission Date: 20120825
  Serious: No
  Sender: FDA-Public Use
  Company Number: US-BAYER-2012-064022

PATIENT
  Age: 31 Year
  Sex: Female
  Weight: 58.957 kg

DRUGS (1)
  1. ALEVE (CAPLET) [Suspect]
     Indication: BACK PAIN
     Dosage: 4 DF, UNK
     Route: 048
     Dates: start: 20070101

REACTIONS (1)
  - NO ADVERSE EVENT [None]
